FAERS Safety Report 16845823 (Version 1)
Quarter: 2019Q3

REPORT INFORMATION
  Report Type: Spontaneous
  Country: US (occurrence: US)
  Receive Date: 20190924
  Receipt Date: 20190924
  Transmission Date: 20191005
  Serious: No
  Sender: FDA-Public Use
  Company Number: US-CATALYST PHARMACEUTICALS, INC-2019CAT00310

PATIENT
  Age: 72 Year
  Sex: Male
  Weight: 102.04 kg

DRUGS (12)
  1. ATENOLOL. [Concomitant]
     Active Substance: ATENOLOL
  2. TUMS [Concomitant]
     Active Substance: CALCIUM CARBONATE
     Dosage: 1 OR 2 PILLS PER DAY
  3. SODIUM BICARBONATE. [Concomitant]
     Active Substance: SODIUM BICARBONATE
     Dosage: 1950 MG, 3X/DAY
  4. AMLODIPINE [Concomitant]
     Active Substance: AMLODIPINE BESYLATE
  5. PANTOPRAZOLE [Concomitant]
     Active Substance: PANTOPRAZOLE
     Dosage: 40 MG, 1X/DAY
  6. FIRDAPSE [Suspect]
     Active Substance: AMIFAMPRIDINE
     Indication: MYASTHENIC SYNDROME
     Dosage: 5 MG
     Route: 048
     Dates: start: 201907, end: 2019
  7. TAMSULOSIN [Concomitant]
     Active Substance: TAMSULOSIN
     Dosage: 0.4 MG, 1X/DAY
  8. FIRDAPSE [Suspect]
     Active Substance: AMIFAMPRIDINE
     Dosage: 10 MG
     Route: 048
     Dates: start: 2019, end: 2019
  9. CALCITRIOL. [Concomitant]
     Active Substance: CALCITRIOL
     Dosage: 1 MG, 1X/DAY
  10. ATORVASTATIN [Concomitant]
     Active Substance: ATORVASTATIN
  11. FIRDAPSE [Suspect]
     Active Substance: AMIFAMPRIDINE
     Dosage: 15 MG
     Route: 048
     Dates: start: 2019, end: 20190805
  12. ASPIRIN. [Concomitant]
     Active Substance: ASPIRIN
     Dosage: 325 MG, 1X/DAY

REACTIONS (6)
  - Flatulence [Not Recovered/Not Resolved]
  - Chills [Recovered/Resolved]
  - Drug ineffective [Not Recovered/Not Resolved]
  - Post procedural fever [Recovered/Resolved]
  - Feeling cold [Recovered/Resolved]
  - Abdominal pain upper [Not Recovered/Not Resolved]

NARRATIVE: CASE EVENT DATE: 201907
